FAERS Safety Report 5841620-7 (Version None)
Quarter: 2008Q3

REPORT INFORMATION
  Report Type: 
  Country: None (occurrence: None)
  Receive Date: 20080812
  Receipt Date: 20080730
  Transmission Date: 20090109
  Serious: Yes (Hospitalization)
  Sender: FDA-Public Use
  Company Number: BE-TYCO HEALTHCARE/MALLINCKRODT-T200801232

PATIENT

DRUGS (1)
  1. PAMELOR [Suspect]
     Dosage: 1000 MG, UNK

REACTIONS (3)
  - CHEST PAIN [None]
  - OVERDOSE [None]
  - STRESS CARDIOMYOPATHY [None]
